FAERS Safety Report 4608221-X (Version None)
Quarter: 2005Q1

REPORT INFORMATION
  Report Type: 
  Country: None (occurrence: None)
  Receive Date: 20050311
  Receipt Date: 20050303
  Transmission Date: 20050727
  Serious: Yes (Other)
  Sender: FDA-Public Use
  Company Number: 200311162BVD

PATIENT
  Age: 61 Year
  Sex: Male
  Weight: 67 kg

DRUGS (12)
  1. CIPROFLOXACIN [Suspect]
     Indication: BRONCHITIS
     Dosage: 1000 MG, TOTAL DAILY, ORAL
     Route: 048
     Dates: start: 20030825, end: 20030831
  2. CIPROFLOXACIN [Suspect]
     Indication: PURULENCE
     Dosage: 1000 MG, TOTAL DAILY, ORAL
     Route: 048
     Dates: start: 20030825, end: 20030831
  3. LEPONEX [Suspect]
  4. ACC [Concomitant]
  5. REFOBACIN [Concomitant]
  6. ATOSIL [Concomitant]
  7. TAVOR [Concomitant]
  8. SOLIAN [Concomitant]
  9. EISEN [Concomitant]
  10. ESPUMISAN [Concomitant]
  11. SIMETHICON [Concomitant]
  12. LACTULOSE [Concomitant]

REACTIONS (6)
  - CONDITION AGGRAVATED [None]
  - CONJUNCTIVITIS [None]
  - DRUG INTERACTION [None]
  - DRUG LEVEL INCREASED [None]
  - PSYCHOTIC DISORDER [None]
  - TRACHEOBRONCHITIS [None]
